APPROVED DRUG PRODUCT: ONDANSETRON HYDROCHLORIDE
Active Ingredient: ONDANSETRON HYDROCHLORIDE
Strength: EQ 4MG BASE/5ML
Dosage Form/Route: SOLUTION;ORAL
Application: A091342 | Product #001 | TE Code: AA
Applicant: CHARTWELL MOLECULAR HOLDINGS LLC
Approved: Jan 27, 2011 | RLD: No | RS: No | Type: RX